FAERS Safety Report 5908323-1 (Version None)
Quarter: 2008Q4

REPORT INFORMATION
  Report Type: 
  Country: None (occurrence: None)
  Receive Date: 20081006
  Receipt Date: 20080930
  Transmission Date: 20090506
  Serious: Yes (Other)
  Sender: FDA-Public Use
  Company Number: FR-BRISTOL-MYERS SQUIBB COMPANY-14353718

PATIENT
  Age: 42 Year
  Sex: Male

DRUGS (2)
  1. SUSTIVA [Suspect]
     Dates: start: 20071206
  2. KIVEXA [Concomitant]

REACTIONS (2)
  - NEUTROPENIA [None]
  - TRANSAMINASES INCREASED [None]
